FAERS Safety Report 5502218-3 (Version None)
Quarter: 2007Q4

REPORT INFORMATION
  Report Type: 
  Country: None (occurrence: None)
  Receive Date: 20071030
  Receipt Date: 20071022
  Transmission Date: 20080405
  Serious: Yes (Hospitalization)
  Sender: FDA-Public Use
  Company Number: FR-AVENTIS-200713370FR

PATIENT
  Age: 93 Year
  Sex: Female

DRUGS (8)
  1. LASIX [Suspect]
     Route: 048
     Dates: start: 20070901, end: 20071004
  2. COTAREG [Suspect]
     Route: 048
     Dates: start: 20070901, end: 20071004
  3. TANAKAN                            /01003103/ [Concomitant]
     Route: 048
  4. TANGANIL                           /00129601/ [Concomitant]
  5. TARDYFERON                         /00023503/ [Concomitant]
     Route: 048
  6. DUPHALAC                           /00163401/ [Concomitant]
     Route: 048
  7. JOUVANCE DE L'ABBE SOURY [Concomitant]
  8. EAU DE MELISSE [Concomitant]

REACTIONS (4)
  - ASTHENIA [None]
  - DRUG INTERACTION [None]
  - HAEMOGLOBIN DECREASED [None]
  - HYPONATRAEMIA [None]
